FAERS Safety Report 7633406-8 (Version None)
Quarter: 2011Q3

REPORT INFORMATION
  Report Type: 
  Country: None (occurrence: None)
  Receive Date: 20110725
  Receipt Date: 20110106
  Transmission Date: 20111222
  Serious: No
  Sender: FDA-Public Use
  Company Number: US-BRISTOL-MYERS SQUIBB COMPANY-15475080

PATIENT
  Sex: Female

DRUGS (1)
  1. SPRYCEL [Suspect]
     Dosage: STARTED COUPLE WEEKS AGO NO OF TREATMENT TAKEN:1
     Dates: start: 20101201

REACTIONS (2)
  - RASH [None]
  - URTICARIA [None]
